FAERS Safety Report 11611713 (Version 1)
Quarter: 2015Q4

REPORT INFORMATION
  Report Type: Spontaneous
  Country: US (occurrence: BR)
  Receive Date: 20151008
  Receipt Date: 20151008
  Transmission Date: 20160304
  Serious: Yes (Hospitalization)
  Sender: FDA-Public Use
  Company Number: US-AKORN PHARMACEUTICALS-2015AKN00579

PATIENT
  Age: 51 Year
  Sex: Male
  Weight: 63 kg

DRUGS (4)
  1. ALDACTONE [Concomitant]
     Active Substance: SPIRONOLACTONE
  2. COSOPT [Suspect]
     Active Substance: DORZOLAMIDE HYDROCHLORIDE\TIMOLOL MALEATE
     Indication: INTRAOCULAR PRESSURE INCREASED
     Dosage: 1 GTT, BID (1 DROP/EYE)
     Dates: start: 1997
  3. COSOPT [Suspect]
     Active Substance: DORZOLAMIDE HYDROCHLORIDE\TIMOLOL MALEATE
     Indication: INTRAOCULAR PRESSURE TEST ABNORMAL
  4. TRAVATAN [Concomitant]
     Active Substance: TRAVOPROST

REACTIONS (10)
  - Intestinal resection [Not Recovered/Not Resolved]
  - Cardiac operation [Unknown]
  - Gynaecomastia [Not Recovered/Not Resolved]
  - Hypotension [Not Recovered/Not Resolved]
  - Angina pectoris [Recovered/Resolved]
  - Malabsorption [Not Recovered/Not Resolved]
  - Hypokalaemia [Not Recovered/Not Resolved]
  - Syncope [Unknown]
  - Hyponatraemia [Not Recovered/Not Resolved]
  - Fatigue [Unknown]
